FAERS Safety Report 10371619 (Version 9)
Quarter: 2015Q3

REPORT INFORMATION
  Report Type: Report from Study
  Country: US (occurrence: US)
  Receive Date: 20140808
  Receipt Date: 20150805
  Transmission Date: 20151125
  Serious: Yes (Hospitalization, Other)
  Sender: FDA-Public Use
  Company Number: US-SA-2014SA103335

PATIENT
  Age: 48 Year
  Sex: Female
  Weight: 61.23 kg

DRUGS (1)
  1. AUBAGIO [Suspect]
     Active Substance: TERIFLUNOMIDE
     Indication: MULTIPLE SCLEROSIS
     Route: 048
     Dates: start: 20140726, end: 20150724

REACTIONS (21)
  - Mental impairment [Unknown]
  - Thinking abnormal [Unknown]
  - Diarrhoea [Recovering/Resolving]
  - Seizure [Unknown]
  - Stress [Unknown]
  - Swelling [Unknown]
  - Back pain [Unknown]
  - Hypoaesthesia [Unknown]
  - Foot fracture [Unknown]
  - Heart rate increased [Unknown]
  - Agitation [Unknown]
  - Musculoskeletal disorder [Unknown]
  - Weight decreased [Unknown]
  - Fall [Unknown]
  - Nephrolithiasis [Unknown]
  - Insomnia [Unknown]
  - Emotional disorder [Unknown]
  - Irritability [Unknown]
  - Visual impairment [Unknown]
  - Fatigue [Unknown]
  - Asthenia [Unknown]

NARRATIVE: CASE EVENT DATE: 20140727
